FAERS Safety Report 6440144-6 (Version None)
Quarter: 2009Q4

REPORT INFORMATION
  Report Type: 
  Country: None (occurrence: None)
  Receive Date: 20091113
  Receipt Date: 20090225
  Transmission Date: 20100525
  Serious: No
  Sender: FDA-Public Use
  Company Number: A0770991A

PATIENT
  Age: 82 Year
  Sex: Male

DRUGS (7)
  1. COREG [Suspect]
     Indication: HYPERTENSION
     Dosage: 80MG PER DAY
     Route: 048
     Dates: start: 20080101
  2. VASOTEC [Concomitant]
  3. CLONIDINE [Concomitant]
  4. HYDROCHLOROTHIAZIDE [Concomitant]
  5. LASIX [Concomitant]
  6. JANUMET [Concomitant]
  7. GLIPIZIDE [Concomitant]

REACTIONS (3)
  - BLOOD PRESSURE INCREASED [None]
  - DRUG EFFECT DECREASED [None]
  - DRUG INEFFECTIVE [None]
